FAERS Safety Report 12072850 (Version 3)
Quarter: 2016Q3

REPORT INFORMATION
  Report Type: Spontaneous
  Country: TR (occurrence: TR)
  Receive Date: 20160212
  Receipt Date: 20160823
  Transmission Date: 20161109
  Serious: Yes (Hospitalization)
  Sender: FDA-Public Use
  Company Number: TR-IPCA LABORATORIES LIMITED-IPC201601-000047

PATIENT
  Age: 45 Year
  Sex: Female

DRUGS (3)
  1. BUPIVACAINE. [Concomitant]
     Active Substance: BUPIVACAINE
     Indication: SPINAL ANAESTHESIA
  2. CEFAZOLIN [Concomitant]
     Active Substance: CEFAZOLIN
     Indication: PREMEDICATION
     Route: 042
  3. TRAMADOL. [Suspect]
     Active Substance: TRAMADOL
     Indication: PAIN

REACTIONS (2)
  - Acute myocardial infarction [Recovering/Resolving]
  - Kounis syndrome [Recovering/Resolving]
